FAERS Safety Report 16803706 (Version 1)
Quarter: 2019Q3

REPORT INFORMATION
  Report Type: Spontaneous
  Country: SE (occurrence: SE)
  Receive Date: 20190913
  Receipt Date: 20190913
  Transmission Date: 20191005
  Serious: Yes (Other)
  Sender: FDA-Public Use
  Company Number: SE-TEVA-2019-SE-1105973

PATIENT
  Sex: Female

DRUGS (9)
  1. LERGIGAN (PROMETHAZINE HYDROCHLORIDE) [Suspect]
     Active Substance: PROMETHAZINE HYDROCHLORIDE
     Dosage: 25 MG X 6, 150MG
     Route: 048
     Dates: start: 20190507, end: 20190507
  2. DIAZEPAM. [Suspect]
     Active Substance: DIAZEPAM
     Dosage: 10MG
     Route: 048
     Dates: start: 20190507, end: 20190507
  3. MIRTAZAPINE. [Suspect]
     Active Substance: MIRTAZAPINE
     Dosage: 60MG
     Route: 048
     Dates: start: 20190507, end: 20190507
  4. VENLAFAXINE [Concomitant]
     Active Substance: VENLAFAXINE HYDROCHLORIDE
  5. TROMBYL [Suspect]
     Active Substance: ASPIRIN
     Dosage: 150MG
     Route: 048
     Dates: start: 20190507, end: 20190507
  6. FELODIPINE. [Suspect]
     Active Substance: FELODIPINE
     Dosage: 20MG
     Route: 048
     Dates: start: 20190507, end: 20190507
  7. LOSARTAN. [Suspect]
     Active Substance: LOSARTAN
     Dosage: 50 MG X2, 100MG
     Route: 065
     Dates: start: 20190507, end: 20190507
  8. SIMVASTATIN. [Suspect]
     Active Substance: SIMVASTATIN
     Dosage: 80MG
     Route: 048
     Dates: start: 20190507, end: 20190507
  9. OMEPRAZOLE. [Suspect]
     Active Substance: OMEPRAZOLE
     Dosage: 8MG
     Route: 048
     Dates: start: 20190507, end: 20190507

REACTIONS (2)
  - Intentional self-injury [Unknown]
  - Intentional overdose [Unknown]

NARRATIVE: CASE EVENT DATE: 20190507
